FAERS Safety Report 7148305-8 (Version None)
Quarter: 2010Q4

REPORT INFORMATION
  Report Type: 
  Country: None (occurrence: None)
  Receive Date: 20101209
  Receipt Date: 20101129
  Transmission Date: 20110411
  Serious: Yes (Other)
  Sender: FDA-Public Use
  Company Number: SK-ELI_LILLY_AND_COMPANY-SK201012000490

PATIENT
  Age: 68 Year
  Sex: Male

DRUGS (4)
  1. FORTEO [Suspect]
     Indication: OSTEOPOROSIS
     Dosage: 20 UG, DAILY (1/D)
     Route: 058
     Dates: start: 20100901
  2. PREDNISONE [Concomitant]
     Dosage: UNK, UNKNOWN
     Route: 048
  3. CALCIUM [Concomitant]
     Indication: OSTEOPOROSIS
     Dosage: UNK, UNKNOWN
     Route: 048
  4. VITAMIN D [Concomitant]
     Indication: OSTEOPOROSIS
     Dosage: UNK, UNKNOWN
     Route: 065

REACTIONS (1)
  - ARRHYTHMIA [None]
